FAERS Safety Report 4449926-3 (Version None)
Quarter: 2004Q3

REPORT INFORMATION
  Report Type: 
  Country: None (occurrence: None)
  Receive Date: 20040915
  Receipt Date: 19980105
  Transmission Date: 20050211
  Serious: Yes (Hospitalization)
  Sender: FDA-Public Use
  Company Number: JP-GLAXOSMITHKLINE-B0052677A

PATIENT
  Age: 62 Year
  Sex: Female
  Weight: 53.9 kg

DRUGS (9)
  1. ZOVIRAX [Suspect]
     Indication: HERPES ZOSTER
     Dosage: 400MG SEE DOSAGE TEXT
     Route: 048
     Dates: start: 19971223, end: 19971223
  2. CALCITRIOL [Concomitant]
     Dosage: .25MCG PER DAY
     Route: 048
  3. CALCIUM CARBONATE [Concomitant]
     Dosage: 3G PER DAY
     Route: 048
  4. ETIZOLAM [Concomitant]
     Dosage: 3TAB PER DAY
     Route: 048
  5. AZULENE SULFONATE SODIUM L-GLUTAMINE [Concomitant]
     Dosage: 1.5G PER DAY
     Route: 048
  6. CILOSTAZOL [Concomitant]
     Dosage: 2TAB PER DAY
     Route: 048
  7. FUROSEMIDE [Concomitant]
     Dosage: 4TAB PER DAY
     Route: 048
  8. SERRAPEPTASE [Concomitant]
     Dosage: 3TAB PER DAY
     Route: 048
  9. CEFACLOR [Concomitant]
     Dosage: 750MG PER DAY
     Route: 048

REACTIONS (8)
  - ATAXIA [None]
  - DEPRESSED LEVEL OF CONSCIOUSNESS [None]
  - DISORIENTATION [None]
  - EMOTIONAL DISORDER [None]
  - GAIT DISTURBANCE [None]
  - INSOMNIA [None]
  - LOGORRHOEA [None]
  - NEUROSIS [None]
